FAERS Safety Report 17359913 (Version 1)
Quarter: 2020Q1

REPORT INFORMATION
  Report Type: Report from Study
  Country: US (occurrence: US)
  Receive Date: 20200203
  Receipt Date: 20200203
  Transmission Date: 20200409
  Serious: Yes (Hospitalization)
  Sender: FDA-Public Use
  Company Number: US-ROCHE-2537544

PATIENT
  Age: 73 Year
  Sex: Male
  Weight: 83.7 kg

DRUGS (3)
  1. PIRFENIDONE. [Suspect]
     Active Substance: PIRFENIDONE
     Indication: NON-SMALL CELL LUNG CANCER
     Dosage: FULL CYCLES OF PRIFENIDONE LAST KNOWN DOSE ON 17/JAN/2020
     Route: 048
  2. CARBOPLATIN. [Suspect]
     Active Substance: CARBOPLATIN
     Indication: NON-SMALL CELL LUNG CANCER
     Dosage: AUC 6?DOSES OF CARBOPLATIN LAST DOSE ON 17/JAN/2020
     Route: 042
     Dates: start: 20181111, end: 20200117
  3. PEMETREXED. [Suspect]
     Active Substance: PEMETREXED
     Indication: NON-SMALL CELL LUNG CANCER
     Dosage: DOSES OF PEMETREXED LAST DOSE ON 17/JAN/2020.
     Route: 042
     Dates: start: 20181111, end: 20200117

REACTIONS (1)
  - Odynophagia [Unknown]

NARRATIVE: CASE EVENT DATE: 20200124
